FAERS Safety Report 26099591 (Version 1)
Quarter: 2025Q4

REPORT INFORMATION
  Report Type: Report from Study
  Country: US (occurrence: US)
  Receive Date: 20251128
  Receipt Date: 20251128
  Transmission Date: 20260117
  Serious: No
  Sender: SANDOZ
  Company Number: US-SANDOZ-SDZ2024US103261

PATIENT
  Sex: Male

DRUGS (4)
  1. OMNITROPE [Suspect]
     Active Substance: SOMATROPIN
     Indication: Hypothyroidism
     Dosage: 1.3 MG, QD, STRENGTH: 10/1.5 MG/ML
     Route: 058
     Dates: start: 2024
  2. OMNITROPE [Suspect]
     Active Substance: SOMATROPIN
     Indication: Hypothyroidism
     Dosage: 1.3 MG, QD, STRENGTH: 10/1.5 MG/ML
     Route: 058
     Dates: start: 2024
  3. OMNITROPE [Suspect]
     Active Substance: SOMATROPIN
     Dosage: 1.3 MG 2 DOSE EVERY
     Route: 058
     Dates: start: 2024
  4. OMNITROPE [Suspect]
     Active Substance: SOMATROPIN
     Dosage: 1.3 MG 2 DOSE EVERY
     Route: 058
     Dates: start: 2024

REACTIONS (5)
  - Incorrect dose administered by device [Unknown]
  - Product storage error [Unknown]
  - Liquid product physical issue [Unknown]
  - Device leakage [Unknown]
  - Device breakage [Unknown]

NARRATIVE: CASE EVENT DATE: 20240101
